APPROVED DRUG PRODUCT: ANJESO
Active Ingredient: MELOXICAM
Strength: 30MG/ML (30MG/ML) **Federal Register determination that product was not discontinued or withdrawn for safety or effectiveness reasons**
Dosage Form/Route: SOLUTION;INTRAVENOUS
Application: N210583 | Product #001
Applicant: BAUDAX BIO INC
Approved: Feb 20, 2020 | RLD: Yes | RS: No | Type: DISCN

PATENTS:
Patent 10709713 | Expires: May 26, 2030
Patent 11458145 | Expires: Mar 8, 2039
Patent 10881663 | Expires: Mar 8, 2039
Patent 11253478 | Expires: May 26, 2030
Patent 9974746 | Expires: May 26, 2030